FAERS Safety Report 4323394-4 (Version None)
Quarter: 2004Q1

REPORT INFORMATION
  Report Type: 
  Country: None (occurrence: None)
  Receive Date: 20040325
  Receipt Date: 20040127
  Transmission Date: 20041129
  Serious: Yes (Death, Life-Threatening)
  Sender: FDA-Public Use
  Company Number: FR-GLAXOSMITHKLINE-B0321348A

PATIENT
  Sex: Male

DRUGS (2)
  1. EPIVIR [Suspect]
     Indication: HIV INFECTION
  2. ZERIT [Suspect]
     Indication: HIV INFECTION

REACTIONS (6)
  - AMNIOCENTESIS ABNORMAL [None]
  - COMPLICATIONS OF MATERNAL EXPOSURE TO THERAPEUTIC DRUGS [None]
  - DRUG EXPOSURE DURING PREGNANCY [None]
  - INTRA-UTERINE DEATH [None]
  - POTTER'S SYNDROME [None]
  - RENAL AGENESIS [None]
